FAERS Safety Report 8270072-5 (Version None)
Quarter: 2012Q2

REPORT INFORMATION
  Report Type: 
  Country: None (occurrence: None)
  Receive Date: 20120406
  Receipt Date: 20120326
  Transmission Date: 20120825
  Serious: Yes (Other)
  Sender: FDA-Public Use
  Company Number: 1222208

PATIENT
  Age: 55 Year
  Sex: Female
  Weight: 99.55 kg

DRUGS (7)
  1. ALOXI [Concomitant]
  2. DIPHENHYDRAMINE HCL [Concomitant]
  3. TAXOTERE [Concomitant]
  4. (DEXAMETHASONE) [Concomitant]
  5. HERCEPTIN [Concomitant]
  6. EMEND [Concomitant]
  7. CARBOPLATIN [Suspect]
     Indication: BREAST CANCER
     Dosage: 750 MG, Q 3 WEEKS, IVPB, OTHER
     Dates: start: 20111110, end: 20120201

REACTIONS (4)
  - RESPIRATORY DISORDER [None]
  - DYSPNOEA [None]
  - HYPERSENSITIVITY [None]
  - FLUSHING [None]
